FAERS Safety Report 4446072-X (Version None)
Quarter: 2004Q3

REPORT INFORMATION
  Report Type: 
  Country: None (occurrence: None)
  Receive Date: 20040910
  Receipt Date: 20040831
  Transmission Date: 20050211
  Serious: Yes (Hospitalization, Other)
  Sender: FDA-Public Use
  Company Number: DE-AMGEN-UK088247

PATIENT
  Sex: Female
  Weight: 61.3 kg

DRUGS (7)
  1. NEULASTA [Suspect]
     Indication: CHEMOTHERAPY
     Route: 058
     Dates: start: 20040809
  2. UROMITEXAN [Concomitant]
     Dates: start: 20040802
  3. FLUOROURACIL [Concomitant]
     Route: 042
     Dates: start: 20040802
  4. EPIRUBICIN [Concomitant]
     Route: 042
     Dates: start: 20040802
  5. CYCLOPHOSPHAMIDE [Concomitant]
     Route: 042
     Dates: start: 20040802
  6. DEXAMETHASONE [Concomitant]
     Route: 048
     Dates: start: 20040802
  7. ZOFRAN [Concomitant]
     Route: 042
     Dates: start: 20040802

REACTIONS (7)
  - ALANINE AMINOTRANSFERASE INCREASED [None]
  - ASPARTATE AMINOTRANSFERASE INCREASED [None]
  - BLOOD ALKALINE PHOSPHATASE INCREASED [None]
  - GAMMA-GLUTAMYLTRANSFERASE INCREASED [None]
  - HEPATIC ENZYME INCREASED [None]
  - PANCYTOPENIA [None]
  - PYREXIA [None]
